FAERS Safety Report 19037602 (Version 1)
Quarter: 2021Q1

REPORT INFORMATION
  Report Type: Spontaneous
  Country: NL (occurrence: NL)
  Receive Date: 20210322
  Receipt Date: 20210322
  Transmission Date: 20210420
  Serious: Yes (Life-Threatening, Other)
  Sender: FDA-Public Use
  Company Number: NL-PFIZER INC-2021251627

PATIENT
  Sex: Female

DRUGS (6)
  1. ENDOXAN [CYCLOPHOSPHAMIDE MONOHYDRATE] [Suspect]
     Active Substance: CYCLOPHOSPHAMIDE
     Indication: BREAST CANCER
     Dosage: 500 MG/M2 HIGH DOSE CTC REGIMEN DIVIDED OVER 4 DAYS
     Route: 065
  2. CARBOPLATIN. [Suspect]
     Active Substance: CARBOPLATIN
     Indication: BREAST CANCER
     Dosage: 1600 MG/M2 HIGH DOSE CTC REGIMEN DIVIDED OVER 4 DAYS
     Route: 065
  3. ENDOXAN [CYCLOPHOSPHAMIDE MONOHYDRATE] [Suspect]
     Active Substance: CYCLOPHOSPHAMIDE
     Dosage: 500 MG/M2, EVERY 3 WEEKS, FOUR COURSES DAILY
  4. THIOTEPA. [Suspect]
     Active Substance: THIOTEPA
     Indication: BREAST CANCER
     Dosage: 480 MG/M2 HIGH DOSE CTC REGIMEN DIVIDED OVER 4 DAYS
     Route: 065
  5. EPIRUBICIN [Concomitant]
     Active Substance: EPIRUBICIN
     Indication: BREAST CANCER
     Dosage: 90 MG/M2, EVERY 3 WEEKS, FOUR COURSES DAILY
     Route: 065
  6. FLUOROURACIL. [Concomitant]
     Active Substance: FLUOROURACIL
     Indication: BREAST CANCER
     Dosage: 500 MG/M2, EVERY 3 WEEKS
     Route: 065

REACTIONS (2)
  - Pericarditis constrictive [Recovered/Resolved]
  - Pericardial effusion [Recovered/Resolved]
